FAERS Safety Report 5594025-0 (Version None)
Quarter: 2008Q1

REPORT INFORMATION
  Report Type: 
  Country: None (occurrence: None)
  Receive Date: 20080116
  Receipt Date: 20000508
  Transmission Date: 20080703
  Serious: Yes (Hospitalization)
  Sender: FDA-Public Use
  Company Number: CA-MERCK-99100870M

PATIENT
  Age: 31 Year
  Sex: Female
  Weight: 54 kg

DRUGS (2)
  1. COZAAR [Suspect]
     Indication: PREGNANCY INDUCED HYPERTENSION
     Route: 048
     Dates: start: 19990510, end: 19990823
  2. ALDOMET [Concomitant]
     Indication: PREGNANCY INDUCED HYPERTENSION
     Route: 048
     Dates: start: 19990823

REACTIONS (4)
  - BACK PAIN [None]
  - DRUG EXPOSURE DURING PREGNANCY [None]
  - OLIGOHYDRAMNIOS [None]
  - PURPURA [None]
